FAERS Safety Report 18659045 (Version 6)
Quarter: 2021Q1

REPORT INFORMATION
  Report Type: Report from Study
  Country: US (occurrence: US)
  Receive Date: 20201224
  Receipt Date: 20210331
  Transmission Date: 20210419
  Serious: Yes (Other)
  Sender: FDA-Public Use
  Company Number: US-TAKEDA-US202021253

PATIENT
  Age: 46 Year
  Sex: Female
  Weight: 83.45 kg

DRUGS (19)
  1. HUMAN IMMUNOGLOBULIN; HYALURONIDASE [Suspect]
     Active Substance: HUMAN IMMUNOGLOBULIN G\HYALURONIDASE RECOMBINANT HUMAN
     Indication: IMMUNODEFICIENCY COMMON VARIABLE
     Dosage: 20 GRAM, Q2WEEKS
     Route: 058
     Dates: start: 20200327
  2. ACETAMINOPHEN. [Concomitant]
     Active Substance: ACETAMINOPHEN
     Route: 065
  3. NORMAL SALINE [Concomitant]
     Active Substance: SODIUM CHLORIDE
     Route: 065
  4. ARMOUR THYROID [Concomitant]
     Active Substance: THYROID, PORCINE
     Dosage: UNK
     Route: 065
  5. EPINEPHRINE. [Concomitant]
     Active Substance: EPINEPHRINE
     Route: 065
  6. MELOXICAM. [Concomitant]
     Active Substance: MELOXICAM
     Route: 065
  7. BENADRYL [Concomitant]
     Active Substance: DIPHENHYDRAMINE HYDROCHLORIDE
     Dosage: UNK
     Route: 065
  8. HUMAN IMMUNOGLOBULIN; HYALURONIDASE [Suspect]
     Active Substance: HUMAN IMMUNOGLOBULIN G\HYALURONIDASE RECOMBINANT HUMAN
     Indication: PRIMARY IMMUNODEFICIENCY SYNDROME
     Dosage: 20 GRAM, Q2WEEKS
     Route: 058
     Dates: start: 20200523
  9. BUPROPION HCL ER [Concomitant]
     Active Substance: BUPROPION HYDROCHLORIDE
     Route: 065
  10. ASPIRIN [ACETYLSALICYLIC ACID] [Concomitant]
     Active Substance: ASPIRIN
     Route: 065
  11. XYZAL [Concomitant]
     Active Substance: LEVOCETIRIZINE DIHYDROCHLORIDE
     Route: 065
  12. MUCINEX [Concomitant]
     Active Substance: GUAIFENESIN
     Route: 065
  13. LMX4 [Concomitant]
     Active Substance: LIDOCAINE
     Route: 065
  14. VITAMIN B2 [Concomitant]
     Active Substance: RIBOFLAVIN
     Route: 065
  15. VENTOLIN HFA [Concomitant]
     Active Substance: ALBUTEROL SULFATE
     Route: 065
  16. AMINOACETIC ACID [Concomitant]
     Active Substance: GLYCINE
     Route: 065
  17. DIPHENHYDRAMINE. [Concomitant]
     Active Substance: DIPHENHYDRAMINE
     Route: 065
  18. PREDNISONE. [Concomitant]
     Active Substance: PREDNISONE
     Route: 065
  19. MULTIVITAMINS [VITAMINS NOS] [Concomitant]
     Active Substance: VITAMINS
     Route: 065

REACTIONS (17)
  - Memory impairment [Unknown]
  - Dysphonia [Recovered/Resolved]
  - Exposure to fungus [Recovered/Resolved]
  - Abdominal pain upper [Unknown]
  - Hepatic cyst [Unknown]
  - Splenomegaly [Unknown]
  - Pain [Unknown]
  - Hypersensitivity [Unknown]
  - COVID-19 [Unknown]
  - Pain in extremity [Recovered/Resolved]
  - Inappropriate schedule of product administration [Unknown]
  - Hepatic steatosis [Unknown]
  - Infusion site pain [Unknown]
  - Type 1 diabetes mellitus [Unknown]
  - Blindness [Unknown]
  - Sinusitis [Unknown]
  - Product dose omission issue [Unknown]

NARRATIVE: CASE EVENT DATE: 202010
